FAERS Safety Report 8746647 (Version 2)
Quarter: 2012Q4

REPORT INFORMATION
  Report Type: 
  Country: BR (occurrence: BR)
  Receive Date: 20120827
  Receipt Date: 20120827
  Transmission Date: 20130627
  Serious: Yes (Death, Hospitalization, Disabling, Other)
  Sender: FDA-Public Use
  Company Number: BR-ELI_LILLY_AND_COMPANY-BR201208004804

PATIENT
  Sex: Male

DRUGS (1)
  1. FORTEO [Suspect]
     Dosage: UNK, unknown
     Route: 065

REACTIONS (7)
  - Haemorrhagic stroke [Fatal]
  - Hospitalisation [Unknown]
  - Abasia [Not Recovered/Not Resolved]
  - Aphasia [Not Recovered/Not Resolved]
  - Cognitive disorder [Not Recovered/Not Resolved]
  - Feeding disorder [Not Recovered/Not Resolved]
  - Loss of consciousness [Not Recovered/Not Resolved]
